FAERS Safety Report 16302916 (Version 1)
Quarter: 2019Q2

REPORT INFORMATION
  Report Type: Spontaneous
  Country: DK (occurrence: DK)
  Receive Date: 20190513
  Receipt Date: 20190513
  Transmission Date: 20190711
  Serious: Yes (Disabling)
  Sender: FDA-Public Use
  Company Number: DK-ROCHE-2315578

PATIENT
  Age: 33 Year
  Sex: Female

DRUGS (2)
  1. TRANDATE [Concomitant]
     Active Substance: LABETALOL HYDROCHLORIDE
     Route: 065
     Dates: start: 20171117
  2. ACTILYSE [Suspect]
     Active Substance: ALTEPLASE
     Indication: CEREBRAL THROMBOSIS
     Route: 065
     Dates: start: 20171117

REACTIONS (14)
  - Nausea [Unknown]
  - Dysphagia [Unknown]
  - Cerebral haemorrhage [Unknown]
  - Visual impairment [Unknown]
  - Headache [Unknown]
  - Tracheostomy [Unknown]
  - Hemiparesis [Unknown]
  - Loss of consciousness [Unknown]
  - Gait disturbance [Unknown]
  - Papilloedema [Unknown]
  - Cognitive disorder [Unknown]
  - Rash [Unknown]
  - Aphasia [Unknown]
  - Quadriplegia [Unknown]

NARRATIVE: CASE EVENT DATE: 20171117
